FAERS Safety Report 6861310-1 (Version None)
Quarter: 2010Q3

REPORT INFORMATION
  Report Type: 
  Country: None (occurrence: None)
  Receive Date: 20100715
  Receipt Date: 20100705
  Transmission Date: 20110219
  Serious: Yes (Other)
  Sender: FDA-Public Use
  Company Number: B0664798A

PATIENT
  Age: 32 Year
  Sex: Male

DRUGS (1)
  1. ALBENDAZOLE (FORMULATION UNKNOWN) (ALBENDAZOLE) (GENERIC) [Suspect]
     Dosage: 400 MG/ORAL
     Route: 048

REACTIONS (7)
  - BRAIN OEDEMA [None]
  - CEREBRAL CYST [None]
  - CONFUSIONAL STATE [None]
  - CONVULSION [None]
  - HEADACHE [None]
  - NEUROCYSTICERCOSIS [None]
  - SELF-MEDICATION [None]
